APPROVED DRUG PRODUCT: DIACOMIT
Active Ingredient: STIRIPENTOL
Strength: 500MG
Dosage Form/Route: CAPSULE;ORAL
Application: N206709 | Product #002
Applicant: BIOCODEX SA
Approved: Aug 20, 2018 | RLD: Yes | RS: Yes | Type: RX

EXCLUSIVITY:
Code: ODE-403 | Date: Jul 14, 2029